FAERS Safety Report 8801422 (Version 3)
Quarter: 2012Q4

REPORT INFORMATION
  Report Type: 
  Country: US (occurrence: US)
  Receive Date: 20120921
  Receipt Date: 20121107
  Transmission Date: 20130627
  Serious: Yes (Other)
  Sender: FDA-Public Use
  Company Number: US-JNJFOC-20120906781

PATIENT
  Sex: Male
  Weight: 92.99 kg

DRUGS (5)
  1. STELARA [Suspect]
     Indication: PSORIASIS
     Route: 058
     Dates: start: 20120321, end: 20120321
  2. STELARA [Suspect]
     Indication: PSORIASIS
     Route: 058
     Dates: start: 20120418, end: 20120418
  3. STELARA [Suspect]
     Indication: PSORIASIS
     Route: 058
     Dates: start: 20120717, end: 20120717
  4. VIIBRYD [Concomitant]
     Indication: DEPRESSION
     Dosage: approximately
     Route: 048
     Dates: start: 201207, end: 201208
  5. VIIBRYD [Concomitant]
     Indication: ANXIETY
     Dosage: approximately
     Route: 048
     Dates: start: 201207, end: 201208

REACTIONS (1)
  - Drug eruption [Not Recovered/Not Resolved]
